FAERS Safety Report 9312546 (Version 1)
Quarter: 2013Q2

REPORT INFORMATION
  Report Type: Spontaneous
  Country: US (occurrence: US)
  Receive Date: 20130528
  Receipt Date: 20130528
  Transmission Date: 20140414
  Serious: No
  Sender: FDA-Public Use
  Company Number: US-JNJFOC-20130514633

PATIENT
  Age: 85 Year
  Sex: Female

DRUGS (2)
  1. NUCYNTA IR [Suspect]
     Indication: PRODUCT USED FOR UNKNOWN INDICATION
     Dosage: 1 EVERY 4 HOURS AS NEEDED
     Route: 048
     Dates: start: 2013
  2. ZOFRAN [Concomitant]
     Route: 065

REACTIONS (1)
  - Throat irritation [Not Recovered/Not Resolved]
